FAERS Safety Report 6957501-1 (Version None)
Quarter: 2010Q3

REPORT INFORMATION
  Report Type: 
  Country: None (occurrence: None)
  Receive Date: 20100831
  Receipt Date: 20091202
  Transmission Date: 20110219
  Serious: No
  Sender: FDA-Public Use
  Company Number: A0832858A

PATIENT
  Age: 74 Year
  Sex: Male

DRUGS (4)
  1. ALBENZA [Suspect]
     Indication: HOOKWORM INFECTION
     Dosage: 400MG TWICE PER DAY
     Dates: start: 20091130
  2. ANTIBIOTICS [Concomitant]
  3. GENTAMICIN [Concomitant]
  4. UNKNOWN DRUG [Concomitant]

REACTIONS (5)
  - CONDITION AGGRAVATED [None]
  - DRUG ADMINISTRATION ERROR [None]
  - DRUG INEFFECTIVE [None]
  - EOSINOPHIL COUNT INCREASED [None]
  - WHITE BLOOD CELL COUNT INCREASED [None]
